FAERS Safety Report 6568453-0 (Version None)
Quarter: 2010Q1

REPORT INFORMATION
  Report Type: 
  Country: None (occurrence: None)
  Receive Date: 20100203
  Receipt Date: 20100201
  Transmission Date: 20100710
  Serious: Yes (Other)
  Sender: FDA-Public Use
  Company Number: A0842334A

PATIENT
  Age: 75 Year
  Sex: Female

DRUGS (7)
  1. ADVAIR DISKUS 100/50 [Suspect]
     Indication: ASTHMA
     Dosage: 1PUFF PER DAY
     Route: 055
     Dates: start: 20050101
  2. PAIN MEDICATION [Concomitant]
  3. LORAZEPAM [Concomitant]
  4. GLUCOSAMINE [Concomitant]
  5. ASPIRIN [Concomitant]
  6. ONE A DAY VITAMIN [Concomitant]
  7. VITAMIN B-12 [Concomitant]

REACTIONS (3)
  - GLAUCOMA [None]
  - HYPERTENSION [None]
  - WHEEZING [None]
